FAERS Safety Report 8643687 (Version 3)
Quarter: 2012Q4

REPORT INFORMATION
  Report Type: 
  Country: JP (occurrence: JP)
  Receive Date: 20120629
  Receipt Date: 20120829
  Transmission Date: 20130627
  Serious: Yes (Other)
  Sender: FDA-Public Use
  Company Number: JP-JNJFOC-20120611660

PATIENT
  Age: 77 Year
  Sex: Female

DRUGS (2)
  1. REMINYL [Suspect]
     Indication: DEMENTIA ALZHEIMER^S TYPE
     Route: 048
     Dates: start: 20120424
  2. AN UNKNOWN MEDICATION [Concomitant]
     Route: 065

REACTIONS (1)
  - Hypertension [Recovering/Resolving]
